FAERS Safety Report 17090627 (Version 2)
Quarter: 2019Q4

REPORT INFORMATION
  Report Type: Spontaneous
  Country: ES (occurrence: ES)
  Receive Date: 20191129
  Receipt Date: 20191225
  Transmission Date: 20200122
  Serious: Yes (Hospitalization)
  Sender: FDA-Public Use
  Company Number: ES-SAMSUNG BIOEPIS-SB-2019-35066

PATIENT
  Sex: Male

DRUGS (4)
  1. FLIXABI [Suspect]
     Active Substance: INFLIXIMAB
     Dosage: 5 MG/KG (260 MG) - WEEK 6
     Route: 042
     Dates: start: 20190404
  2. FLIXABI [Suspect]
     Active Substance: INFLIXIMAB
     Dosage: 5 MG/KG (260 MG) - WEEK 2
     Route: 042
     Dates: start: 20190307
  3. FLIXABI [Suspect]
     Active Substance: INFLIXIMAB
     Dosage: 5 MG/KG (260 MG) - WEEK 14
     Route: 042
     Dates: start: 20190530
  4. FLIXABI [Suspect]
     Active Substance: INFLIXIMAB
     Indication: COLITIS ULCERATIVE
     Dosage: 5 MG/KG (260 MG) - WEEK 0
     Route: 042
     Dates: start: 20190222

REACTIONS (4)
  - Fatigue [Recovered/Resolved]
  - Depression [Recovered/Resolved]
  - Paraesthesia [Recovering/Resolving]
  - Guillain-Barre syndrome [Recovered/Resolved]

NARRATIVE: CASE EVENT DATE: 20190605
